FAERS Safety Report 6404558-2 (Version None)
Quarter: 2009Q4

REPORT INFORMATION
  Report Type: 
  Country: None (occurrence: None)
  Receive Date: 20091016
  Receipt Date: 20091012
  Transmission Date: 20100525
  Serious: Yes (Death, Other)
  Sender: FDA-Public Use
  Company Number: PHEH2009US13536

PATIENT
  Sex: Female

DRUGS (2)
  1. AREDIA [Suspect]
     Dosage: UNK, UNK
  2. ZOMETA [Suspect]
     Dosage: UNK, UNK

REACTIONS (4)
  - DEATH [None]
  - INJURY [None]
  - OSTEONECROSIS [None]
  - OVERDOSE [None]
